FAERS Safety Report 17755867 (Version 1)
Quarter: 2020Q2

REPORT INFORMATION
  Report Type: Spontaneous
  Country: US (occurrence: US)
  Receive Date: 20200506
  Receipt Date: 20200506
  Transmission Date: 20200714
  Serious: Yes (Life-Threatening, Hospitalization, Disabling, Other)
  Sender: FDA-Public Use
  Company Number: None

PATIENT
  Age: 51 Year
  Sex: Female
  Weight: 66.6 kg

DRUGS (10)
  1. DIAZEPAM. [Concomitant]
     Active Substance: DIAZEPAM
     Indication: INSOMNIA
  2. VITAMIN A [Concomitant]
     Active Substance: VITAMIN A
  3. ESTROGEN [Concomitant]
     Active Substance: ESTROGENS
  4. PROGESTERONE. [Concomitant]
     Active Substance: PROGESTERONE
  5. XANAX [Suspect]
     Active Substance: ALPRAZOLAM
     Indication: STRESS
     Dosage: ?          QUANTITY:3 TABLET(S);?
     Route: 048
     Dates: start: 19980930, end: 20200105
  6. VITAMIN D [Concomitant]
     Active Substance: VITAMIN D NOS
  7. XANAX [Suspect]
     Active Substance: ALPRAZOLAM
     Indication: INSOMNIA
     Dosage: ?          QUANTITY:3 TABLET(S);?
     Route: 048
     Dates: start: 19980930, end: 20200105
  8. CANE [Concomitant]
  9. ADRENALS [Concomitant]
  10. WALKER CANE [Concomitant]

REACTIONS (50)
  - Cognitive disorder [None]
  - Muscular weakness [None]
  - Job dissatisfaction [None]
  - Feeling abnormal [None]
  - Noninfective gingivitis [None]
  - Depression [None]
  - Suicidal ideation [None]
  - Psychomotor retardation [None]
  - Paraesthesia [None]
  - Chills [None]
  - Nightmare [None]
  - Restlessness [None]
  - Impaired quality of life [None]
  - Back pain [None]
  - Hyperhidrosis [None]
  - Headache [None]
  - Condition aggravated [None]
  - Arthralgia [None]
  - Abdominal distension [None]
  - Altered state of consciousness [None]
  - Irritability [None]
  - Chest discomfort [None]
  - Kidney infection [None]
  - Bruxism [None]
  - Confusional state [None]
  - Anxiety [None]
  - Lacrimation increased [None]
  - Vitreous floaters [None]
  - Dysuria [None]
  - Postural orthostatic tachycardia syndrome [None]
  - Seizure [None]
  - Withdrawal syndrome [None]
  - Homeless [None]
  - Toothache [None]
  - Dizziness postural [None]
  - Pain of skin [None]
  - Mood swings [None]
  - Eye burns [None]
  - Anosmia [None]
  - Fatigue [None]
  - Pruritus [None]
  - Gingival disorder [None]
  - Fear [None]
  - Abdominal discomfort [None]
  - Nausea [None]
  - Vision blurred [None]
  - Tinnitus [None]
  - Nephrolithiasis [None]
  - Gait disturbance [None]
  - Loss of personal independence in daily activities [None]
